FAERS Safety Report 6385285-7 (Version None)
Quarter: 2009Q4

REPORT INFORMATION
  Report Type: 
  Country: None (occurrence: None)
  Receive Date: 20091002
  Receipt Date: 20080815
  Transmission Date: 20100525
  Serious: No
  Sender: FDA-Public Use
  Company Number: US-ASTRAZENECA-2008UW16799

PATIENT
  Age: 72 Year
  Sex: Female
  Weight: 72.6 kg

DRUGS (5)
  1. ARIMIDEX [Suspect]
     Indication: BREAST CANCER
     Route: 048
     Dates: start: 20060801
  2. BONIVA [Concomitant]
  3. SIMVASTATIN [Concomitant]
  4. AVALIDE [Concomitant]
     Dosage: 300/12.5
  5. METOPROLOL [Concomitant]

REACTIONS (1)
  - DISTURBANCE IN SEXUAL AROUSAL [None]
